FAERS Safety Report 15868271 (Version 1)
Quarter: 2019Q1

REPORT INFORMATION
  Report Type: Spontaneous
  Country: US (occurrence: US)
  Receive Date: 20190125
  Receipt Date: 20190125
  Transmission Date: 20190417
  Serious: Yes (Death)
  Sender: FDA-Public Use
  Company Number: None

PATIENT

DRUGS (1)
  1. COLCHICINE TABLETS [Suspect]
     Active Substance: COLCHICINE

REACTIONS (1)
  - Death [None]
